FAERS Safety Report 14228198 (Version 2)
Quarter: 2017Q4

REPORT INFORMATION
  Report Type: Report from Study
  Country: DE (occurrence: DE)
  Receive Date: 20171127
  Receipt Date: 20171201
  Transmission Date: 20180321
  Serious: Yes (Hospitalization, Other)
  Sender: FDA-Public Use
  Company Number: DE-B.I. PHARMACEUTICALS,INC./RIDGEFIELD-2017-BI-062445

PATIENT
  Age: 73 Year
  Sex: Female
  Weight: 72 kg

DRUGS (18)
  1. GLIMEGAMMA [Concomitant]
     Active Substance: GLIMEPIRIDE
     Indication: HYPERTENSION
     Route: 048
  2. BISOBETA [Concomitant]
     Indication: HYPERTENSION
     Route: 048
  3. PANTOPRAZOL [Concomitant]
     Active Substance: PANTOPRAZOLE SODIUM
     Indication: PROPHYLAXIS
     Route: 048
  4. ASPIRIN. [Concomitant]
     Active Substance: ASPIRIN
     Indication: PRODUCT USED FOR UNKNOWN INDICATION
     Route: 048
  5. FENOBIRAT [Concomitant]
     Indication: PRODUCT USED FOR UNKNOWN INDICATION
     Route: 048
  6. LEVOFLOXACIN. [Concomitant]
     Active Substance: LEVOFLOXACIN
     Indication: PNEUMONIA
     Route: 048
     Dates: start: 20171117, end: 20171124
  7. OXYGEN THERAPY [Concomitant]
     Active Substance: OXYGEN
     Indication: ALVEOLITIS ALLERGIC
     Route: 050
     Dates: start: 20160825
  8. JANUVIA [Concomitant]
     Active Substance: SITAGLIPTIN PHOSPHATE
     Indication: DIABETES MELLITUS
     Route: 048
  9. ACTRAPID [Concomitant]
     Active Substance: INSULIN HUMAN
     Indication: DIABETES MELLITUS
     Dosage: DOSE: NACH IE BE
     Route: 065
  10. VALSARTAN. [Concomitant]
     Active Substance: VALSARTAN
     Indication: HYPERTENSION
     Route: 048
     Dates: start: 20171117
  11. CANDESARTAN BIOMO [Concomitant]
     Indication: HYPERTENSION
     Route: 048
     Dates: end: 20171117
  12. METFORMIN [Concomitant]
     Active Substance: METFORMIN HYDROCHLORIDE
     Indication: DIABETES MELLITUS
     Route: 048
  13. INSUMAN COMB GT [Concomitant]
     Indication: DIABETES MELLITUS
     Dosage: DOSE: NACH IE BE
     Route: 065
  14. TORASEMID [Concomitant]
     Active Substance: TORSEMIDE
     Indication: PRODUCT USED FOR UNKNOWN INDICATION
     Route: 048
  15. ARAVA [Concomitant]
     Active Substance: LEFLUNOMIDE
     Indication: ALVEOLITIS ALLERGIC
     Route: 065
     Dates: start: 20171023
  16. NINTEDANIB [Suspect]
     Active Substance: NINTEDANIB
     Indication: INTERSTITIAL LUNG DISEASE
     Route: 048
     Dates: start: 20171103
  17. PREDNISON [Concomitant]
     Active Substance: PREDNISONE
     Indication: ALVEOLITIS ALLERGIC
     Route: 048
  18. DOXACOR [Concomitant]
     Indication: HYPERTENSION
     Route: 048

REACTIONS (3)
  - Vomiting [Not Recovered/Not Resolved]
  - Pneumonia [Recovered/Resolved]
  - Diarrhoea [Recovered/Resolved]

NARRATIVE: CASE EVENT DATE: 20171115
